FAERS Safety Report 26073881 (Version 1)
Quarter: 2025Q4

REPORT INFORMATION
  Report Type: Report from Study
  Country: EU (occurrence: EU)
  Receive Date: 20251121
  Receipt Date: 20251121
  Transmission Date: 20260117
  Serious: Yes (Other)
  Sender: ACCORD
  Company Number: None

PATIENT
  Age: 55 Year
  Sex: Female

DRUGS (3)
  1. PACLITAXEL [Suspect]
     Active Substance: PACLITAXEL
     Indication: Breast cancer
     Dates: start: 20250724, end: 20250724
  2. TRASTUZUMAB [Concomitant]
     Active Substance: TRASTUZUMAB
     Dosage: 3RD CYCLE
     Dates: start: 20250717, end: 20250717
  3. PERJETA [Concomitant]
     Active Substance: PERTUZUMAB
     Dosage: 3RD CYCLE
     Dates: start: 20250717, end: 20250717

REACTIONS (3)
  - Aortic valve incompetence [Recovering/Resolving]
  - Mitral valve incompetence [Recovering/Resolving]
  - Off label use [Not Recovered/Not Resolved]

NARRATIVE: CASE EVENT DATE: 20250724
